FAERS Safety Report 6252571-0 (Version None)
Quarter: 2009Q3

REPORT INFORMATION
  Report Type: 
  Country: None (occurrence: None)
  Receive Date: 20090701
  Receipt Date: 20090619
  Transmission Date: 20100115
  Serious: Yes (Other)
  Sender: FDA-Public Use
  Company Number: FR-BAYER-200923859GPV

PATIENT
  Age: 80 Year
  Sex: Male

DRUGS (7)
  1. IZILOX [Suspect]
     Indication: ESCHERICHIA INFECTION
     Dosage: TOTAL DAILY DOSE: 800 MG  UNIT DOSE: 400 MG
     Route: 048
     Dates: start: 20090423, end: 20090423
  2. IZILOX [Suspect]
     Dosage: TOTAL DAILY DOSE: 400 MG  UNIT DOSE: 400 MG
     Route: 048
     Dates: start: 20090424, end: 20090428
  3. HEMIGOXINE [Concomitant]
  4. ATACAND [Concomitant]
  5. KARDEGIC [Concomitant]
  6. PLAVIX [Concomitant]
  7. LYRICA [Concomitant]

REACTIONS (1)
  - ATRIAL TACHYCARDIA [None]
